FAERS Safety Report 13911748 (Version 1)
Quarter: 2017Q3

REPORT INFORMATION
  Report Type: Spontaneous
  Country: US (occurrence: US)
  Receive Date: 20170828
  Receipt Date: 20170828
  Transmission Date: 20171127
  Serious: No
  Sender: FDA-Public Use
  Company Number: US-ROCHE-1145167

PATIENT
  Sex: Female

DRUGS (2)
  1. NUTROPIN AQ [Suspect]
     Active Substance: SOMATROPIN
     Indication: PRODUCT USED FOR UNKNOWN INDICATION
     Route: 065
  2. ESTROGEN [Concomitant]
     Active Substance: ESTROGENS
     Route: 065

REACTIONS (5)
  - Parosmia [Unknown]
  - Product quality issue [Unknown]
  - Burning sensation [Unknown]
  - Malaise [Unknown]
  - Peripheral swelling [Unknown]
